FAERS Safety Report 5177000-X (Version None)
Quarter: 2006Q4

REPORT INFORMATION
  Report Type: 
  Country: None (occurrence: None)
  Receive Date: 20061207
  Receipt Date: 20061125
  Transmission Date: 20070319
  Serious: Yes (Hospitalization, Other)
  Sender: FDA-Public Use
  Company Number: HQWYE616128NOV06

PATIENT
  Age: 18 Year
  Sex: Male

DRUGS (7)
  1. RAPAMUNE [Suspect]
     Indication: PROPHYLAXIS AGAINST TRANSPLANT REJECTION
     Dosage: 6 MG ONSET, ORAL
     Route: 048
     Dates: start: 20061026, end: 20061001
  2. RAPAMUNE [Suspect]
     Indication: PROPHYLAXIS AGAINST TRANSPLANT REJECTION
     Dosage: 2 MG 1X PER 1 DAY; ORAL, 3MG 1X PER 1 DAY, ORAL, 2 MG 1X PER 1 DAY; ORAL, 1 MG 1X PER 1 DAY; ORAL
     Route: 048
     Dates: start: 20061001, end: 20061028
  3. RAPAMUNE [Suspect]
     Indication: PROPHYLAXIS AGAINST TRANSPLANT REJECTION
     Dosage: 2 MG 1X PER 1 DAY; ORAL, 3MG 1X PER 1 DAY, ORAL, 2 MG 1X PER 1 DAY; ORAL, 1 MG 1X PER 1 DAY; ORAL
     Route: 048
     Dates: start: 20061029, end: 20061107
  4. RAPAMUNE [Suspect]
     Indication: PROPHYLAXIS AGAINST TRANSPLANT REJECTION
     Dosage: 2 MG 1X PER 1 DAY; ORAL, 3MG 1X PER 1 DAY, ORAL, 2 MG 1X PER 1 DAY; ORAL, 1 MG 1X PER 1 DAY; ORAL
     Route: 048
     Dates: start: 20061108, end: 20061115
  5. RAPAMUNE [Suspect]
     Indication: PROPHYLAXIS AGAINST TRANSPLANT REJECTION
     Dosage: 2 MG 1X PER 1 DAY; ORAL, 3MG 1X PER 1 DAY, ORAL, 2 MG 1X PER 1 DAY; ORAL, 1 MG 1X PER 1 DAY; ORAL
     Route: 048
     Dates: start: 20061116
  6. CYCLOSPORINE [Concomitant]
  7. CYCLOSPORINE [Concomitant]

REACTIONS (3)
  - BODY TEMPERATURE INCREASED [None]
  - KIDNEY TRANSPLANT REJECTION [None]
  - THROMBOCYTOPENIA [None]
